FAERS Safety Report 9528269 (Version 1)
Quarter: 2013Q3

REPORT INFORMATION
  Report Type: Report from Study
  Country: TH (occurrence: TH)
  Receive Date: 20130917
  Receipt Date: 20130917
  Transmission Date: 20140515
  Serious: Yes (Other)
  Sender: FDA-Public Use
  Company Number: PHHY2013TH101925

PATIENT
  Age: 69 Year
  Sex: Male

DRUGS (5)
  1. ZOMETA [Suspect]
     Indication: METASTASES TO BONE
     Dosage: 4 MG / TIME/ 3 MONTHS
     Route: 041
  2. ZOMETA [Suspect]
     Dosage: 4 MG / TIME/ 3 MONTHS
     Route: 041
     Dates: start: 20130530
  3. CALCIUM [Concomitant]
  4. D VITAMIINI [Concomitant]
     Dosage: UNK UKN, UNK
  5. HORMONES [Concomitant]
     Dosage: 2 INJECTIONS IN 1 DAY IN EVERY 3 MONTHS
     Dates: end: 201305

REACTIONS (5)
  - Bone loss [Unknown]
  - Hip fracture [Unknown]
  - Compression fracture [Unknown]
  - Hypoaesthesia [Unknown]
  - Pain [Unknown]
